FAERS Safety Report 7394668-8 (Version None)
Quarter: 2011Q1

REPORT INFORMATION
  Report Type: 
  Country: None (occurrence: None)
  Receive Date: 20110331
  Receipt Date: 20110331
  Transmission Date: 20110831
  Serious: No
  Sender: FDA-Public Use
  Company Number: None

PATIENT

DRUGS (2)
  1. BUPVACAINE 0.5% HOSPIRA [Suspect]
     Indication: NERVE BLOCK
     Dates: start: 20110325, end: 20110325
  2. LIDOCAINE [Suspect]
     Indication: NERVE BLOCK
     Dates: start: 20110325, end: 20110325

REACTIONS (2)
  - DRUG INEFFECTIVE [None]
  - PRODUCT QUALITY ISSUE [None]
